FAERS Safety Report 8617135-X (Version None)
Quarter: 2012Q3

REPORT INFORMATION
  Report Type: 
  Country: None (occurrence: None)
  Receive Date: 20120823
  Receipt Date: 20120820
  Transmission Date: 20120928
  Serious: No
  Sender: FDA-Public Use
  Company Number: US-PFIZER INC-2012204151

PATIENT
  Age: 16 Year
  Sex: Male
  Weight: 69.841 kg

DRUGS (7)
  1. MELOXICAM [Concomitant]
     Indication: SPONDYLITIS
     Dosage: UNK, 2X/DAY
  2. ZYRTEC [Concomitant]
     Indication: HYPERSENSITIVITY
     Dosage: UNK
  3. RHINOCORT [Concomitant]
     Dosage: UNK
     Route: 045
  4. METHOTREXATE [Concomitant]
     Indication: SPONDYLITIS
     Dosage: UNK, WEEKLY
  5. CALCIUM [Concomitant]
     Indication: BONE DENSITY ABNORMAL
     Dosage: UNK, 2X/DAY
  6. GENOTROPIN [Suspect]
     Indication: GROWTH HORMONE DEFICIENCY
     Dosage: UNK, 1X/DAY
     Route: 058
     Dates: start: 20120713
  7. VITAMIN D [Concomitant]
     Indication: BONE DENSITY ABNORMAL
     Dosage: UNK, 1X/DAY

REACTIONS (1)
  - HEADACHE [None]
